FAERS Safety Report 25099004 (Version 5)
Quarter: 2025Q3

REPORT INFORMATION
  Report Type: Report from Study
  Country: US (occurrence: US)
  Receive Date: 20250320
  Receipt Date: 20250919
  Transmission Date: 20251021
  Serious: No
  Sender: AVERITAS
  Company Number: US-GRUNENTHAL-2025-104263

PATIENT
  Age: 70 Year
  Sex: Female

DRUGS (2)
  1. QUTENZA [Suspect]
     Active Substance: CAPSAICIN
     Indication: Diabetic neuropathy
     Route: 061
     Dates: start: 20250313, end: 20250313
  2. QUTENZA [Suspect]
     Active Substance: CAPSAICIN
     Route: 061
     Dates: start: 20250612, end: 20250612

REACTIONS (6)
  - Pain in extremity [Not Recovered/Not Resolved]
  - Pain [Unknown]
  - Gastroenteritis viral [Unknown]
  - Malaise [Unknown]
  - Pruritus [Unknown]
  - Thermal burn [Unknown]

NARRATIVE: CASE EVENT DATE: 20250314
